FAERS Safety Report 12485262 (Version 1)
Quarter: 2016Q2

REPORT INFORMATION
  Report Type: Report from Study
  Country: CZ (occurrence: CZ)
  Receive Date: 20160621
  Receipt Date: 20160621
  Transmission Date: 20160815
  Serious: Yes (Hospitalization)
  Sender: FDA-Public Use
  Company Number: CZ-CELGENEUS-CZE-2015074293

PATIENT
  Age: 73 Year
  Sex: Male
  Weight: 82 kg

DRUGS (13)
  1. RITUXIMAB [Suspect]
     Active Substance: RITUXIMAB
     Indication: B-CELL LYMPHOMA
     Route: 041
     Dates: start: 20141119, end: 20141210
  2. CODEIN [Concomitant]
     Active Substance: CODEINE
     Indication: COUGH
     Route: 048
     Dates: start: 20150701, end: 20150710
  3. METFORMIN [Concomitant]
     Active Substance: METFORMIN HYDROCHLORIDE
     Indication: DIABETES MELLITUS
     Route: 048
     Dates: start: 20150113
  4. KLACID [Concomitant]
     Active Substance: CLARITHROMYCIN
     Indication: SINUSITIS
     Dosage: 850 MILLIGRAM
     Route: 048
     Dates: start: 20150701
  5. EXACYL [Concomitant]
     Active Substance: TRANEXAMIC ACID
     Indication: EPISTAXIS
     Route: 048
     Dates: start: 20150628, end: 20150701
  6. IMMUNOGLOBULIN [Concomitant]
     Active Substance: HUMAN IMMUNOGLOBULIN G
     Indication: HYPOGAMMAGLOBULINAEMIA
     Dosage: G/KG
     Route: 041
     Dates: start: 20150703, end: 20150703
  7. PLACEBO [Suspect]
     Active Substance: UNSPECIFIED INGREDIENT
     Indication: LYMPHOMA
     Dosage: 40 MILLIGRAM
     Route: 048
     Dates: start: 20141119, end: 20141210
  8. TELMISARTAN. [Concomitant]
     Active Substance: TELMISARTAN
     Indication: HYPERTENSION
     Route: 048
     Dates: start: 2014
  9. PLACEBO [Suspect]
     Active Substance: UNSPECIFIED INGREDIENT
     Dosage: 1000 MILLIGRAM
     Route: 048
     Dates: start: 20150603, end: 20150701
  10. RITUXIMAB [Suspect]
     Active Substance: RITUXIMAB
     Route: 041
     Dates: start: 20150311, end: 20150311
  11. CLARITHROMYCIN. [Concomitant]
     Active Substance: CLARITHROMYCIN
     Indication: SINUSITIS
     Route: 048
     Dates: start: 20150701, end: 20150710
  12. CODEIN [Concomitant]
     Active Substance: CODEINE
     Indication: SINUSITIS
  13. ALLOPURINOL. [Concomitant]
     Active Substance: ALLOPURINOL
     Indication: HYPERURICAEMIA
     Route: 048
     Dates: start: 20150704

REACTIONS (3)
  - Haematuria [Recovered/Resolved]
  - Transitional cell cancer of the renal pelvis and ureter localised [Recovered/Resolved]
  - Renal colic [Recovered/Resolved]

NARRATIVE: CASE EVENT DATE: 20150706
